FAERS Safety Report 23317817 (Version 1)
Quarter: 2023Q4

REPORT INFORMATION
  Report Type: Spontaneous
  Country: US (occurrence: None)
  Receive Date: 20231219
  Receipt Date: 20231219
  Transmission Date: 20240110
  Serious: No
  Sender: FDA-Public Use
  Company Number: US-ROCHE-3363963

PATIENT

DRUGS (1)
  1. GAZYVA [Suspect]
     Active Substance: OBINUTUZUMAB
     Indication: Product used for unknown indication
     Route: 042

REACTIONS (6)
  - Alopecia [Unknown]
  - Weight increased [Unknown]
  - Dyspnoea [Unknown]
  - Visual field defect [Unknown]
  - Pruritus [Unknown]
  - Pain [Unknown]
